FAERS Safety Report 7548915-X (Version None)
Quarter: 2011Q2

REPORT INFORMATION
  Report Type: 
  Country: None (occurrence: None)
  Receive Date: 20110615
  Receipt Date: 20110606
  Transmission Date: 20111010
  Serious: Yes (Other)
  Sender: FDA-Public Use
  Company Number: SI-ROCHE-734607

PATIENT
  Sex: Male

DRUGS (2)
  1. METHOXY POLYETHYLENE GLYCOL-EPOETIN BETA [Suspect]
     Route: 058
  2. METHOXY POLYETHYLENE GLYCOL-EPOETIN BETA [Suspect]
     Route: 058

REACTIONS (1)
  - PLASMACYTOMA [None]
